FAERS Safety Report 14095491 (Version 2)
Quarter: 2017Q4

REPORT INFORMATION
  Report Type: Spontaneous
  Country: US (occurrence: US)
  Receive Date: 20171017
  Receipt Date: 20171017
  Transmission Date: 20180321
  Serious: Yes (Hospitalization)
  Sender: FDA-Public Use
  Company Number: US-APOTEX-2017AP019806

PATIENT
  Age: 78 Year
  Sex: Female

DRUGS (4)
  1. LITHIUM CARBONATE. [Suspect]
     Active Substance: LITHIUM CARBONATE
     Dosage: 300 MG, SINGLE DOSE
     Route: 065
  2. VALPROIC ACID. [Concomitant]
     Active Substance: VALPROIC ACID
     Indication: MANIA
     Dosage: 250 MG, TID
     Route: 048
  3. TRIFLUOPERAZINE [Concomitant]
     Active Substance: TRIFLUOPERAZINE\TRIFLUOPERAZINE HYDROCHLORIDE
     Indication: MANIA
     Dosage: 1 MG, BID
     Route: 048
  4. LITHIUM CARBONATE. [Suspect]
     Active Substance: LITHIUM CARBONATE
     Indication: BIPOLAR I DISORDER
     Dosage: UNK
     Route: 065

REACTIONS (5)
  - Agitation [Recovered/Resolved]
  - Mania [Recovered/Resolved]
  - Withdrawal syndrome [Recovered/Resolved]
  - Psychiatric decompensation [Recovered/Resolved]
  - Blood thyroid stimulating hormone increased [Recovered/Resolved]
